APPROVED DRUG PRODUCT: FUNGIZONE
Active Ingredient: AMPHOTERICIN B
Strength: 3%
Dosage Form/Route: OINTMENT;TOPICAL
Application: N050313 | Product #001
Applicant: APOTHECON INC DIV BRISTOL MYERS SQUIBB
Approved: Approved Prior to Jan 1, 1982 | RLD: No | RS: No | Type: DISCN